FAERS Safety Report 11774700 (Version 2)
Quarter: 2015Q4

REPORT INFORMATION
  Report Type: Spontaneous
  Country: IT (occurrence: IT)
  Receive Date: 20151124
  Receipt Date: 20151204
  Transmission Date: 20160304
  Serious: Yes (Hospitalization)
  Sender: FDA-Public Use
  Company Number: IT-ABBVIE-15P-083-1503089-00

PATIENT
  Age: 68 Year
  Sex: Female
  Weight: 59 kg

DRUGS (5)
  1. VIEKIRAX [Suspect]
     Active Substance: OMBITASVIR\PARITAPREVIR\RITONAVIR
     Dosage: 137,5 MG
     Route: 048
     Dates: end: 20150918
  2. EXVIERA [Suspect]
     Active Substance: DASABUVIR
     Route: 048
     Dates: end: 20150918
  3. EXVIERA [Suspect]
     Active Substance: DASABUVIR
     Indication: HEPATITIS C
     Route: 048
     Dates: start: 20150727, end: 20150829
  4. VIEKIRAX [Suspect]
     Active Substance: OMBITASVIR\PARITAPREVIR\RITONAVIR
     Indication: HEPATITIS C
     Dosage: 137,5 MG
     Route: 048
     Dates: start: 20150724, end: 20150829
  5. RIBAVIRINA TEVA [Suspect]
     Active Substance: RIBAVIRIN
     Indication: HEPATITIS C
     Route: 048
     Dates: start: 20150727, end: 20150829

REACTIONS (6)
  - Diabetic ketoacidosis [Not Recovered/Not Resolved]
  - Gravitational oedema [Not Recovered/Not Resolved]
  - Ascites [Not Recovered/Not Resolved]
  - Hepatic cirrhosis [Not Recovered/Not Resolved]
  - Peripheral sensory neuropathy [Not Recovered/Not Resolved]
  - Hepatic encephalopathy [Not Recovered/Not Resolved]

NARRATIVE: CASE EVENT DATE: 20150829
